FAERS Safety Report 7860406-5 (Version None)
Quarter: 2011Q4

REPORT INFORMATION
  Report Type: 
  Country: None (occurrence: None)
  Receive Date: 20111027
  Receipt Date: 20111019
  Transmission Date: 20120403
  Serious: Yes (Death, Hospitalization)
  Sender: FDA-Public Use
  Company Number: PHHY2011CA91082

PATIENT
  Sex: Male

DRUGS (1)
  1. SANDOSTATIN LAR [Suspect]
     Indication: TESTIS CANCER
     Dosage: 30 MG, EVERY 4 WEEKS
     Route: 030
     Dates: start: 20111007

REACTIONS (3)
  - NEOPLASM MALIGNANT [None]
  - ASTHENIA [None]
  - DYSPNOEA [None]
